FAERS Safety Report 21410563 (Version 1)
Quarter: 2022Q4

REPORT INFORMATION
  Report Type: Spontaneous
  Country: US (occurrence: None)
  Receive Date: 20221003
  Receipt Date: 20221003
  Transmission Date: 20230113
  Serious: Yes (Hospitalization)
  Sender: FDA-Public Use
  Company Number: None

PATIENT
  Age: 83 Year
  Sex: Female
  Weight: 55 kg

DRUGS (1)
  1. POMALYST [Suspect]
     Active Substance: POMALIDOMIDE
     Indication: Plasma cell myeloma
     Dosage: OTHER FREQUENCY : 21 DAYS 7 DAYS OFF;?
     Route: 048
     Dates: start: 20220712, end: 20220921

REACTIONS (6)
  - Diarrhoea [None]
  - Asthenia [None]
  - Fall [None]
  - Hypotension [None]
  - Acute kidney injury [None]
  - Therapy interrupted [None]

NARRATIVE: CASE EVENT DATE: 20220921
